FAERS Safety Report 13111326 (Version 17)
Quarter: 2020Q3

REPORT INFORMATION
  Report Type: Spontaneous
  Country: US (occurrence: US)
  Receive Date: 20170112
  Receipt Date: 20200825
  Transmission Date: 20201102
  Serious: Yes (Hospitalization, Other)
  Sender: FDA-Public Use
  Company Number: US-ACTELION-A-US2017-148216

PATIENT
  Age: 42 Year
  Sex: Female

DRUGS (13)
  1. IBUPROFEN. [Concomitant]
     Active Substance: IBUPROFEN
  2. TYLENOL WITH CODEINE [Concomitant]
     Active Substance: ACETAMINOPHEN\CODEINE PHOSPHATE
  3. OPSUMIT [Suspect]
     Active Substance: MACITENTAN
     Dosage: UNK
     Route: 048
     Dates: start: 20161017
  4. OPSUMIT [Suspect]
     Active Substance: MACITENTAN
     Dosage: 10 MG, QD
     Route: 048
     Dates: start: 20190701
  5. NAPROXEN. [Concomitant]
     Active Substance: NAPROXEN
  6. OPSUMIT [Suspect]
     Active Substance: MACITENTAN
     Indication: PULMONARY ARTERIAL HYPERTENSION
     Dosage: 10 MG, QD
     Route: 048
     Dates: start: 20161004
  7. COLCRYS [Concomitant]
     Active Substance: COLCHICINE
  8. LASIX [Concomitant]
     Active Substance: FUROSEMIDE
  9. ZOFRAN [Concomitant]
     Active Substance: ONDANSETRON HYDROCHLORIDE
  10. AMBIEN [Concomitant]
     Active Substance: ZOLPIDEM TARTRATE
  11. POTASSIUM [Concomitant]
     Active Substance: POTASSIUM
  12. REVATIO [Concomitant]
     Active Substance: SILDENAFIL CITRATE
  13. MAGNESIUM [Concomitant]
     Active Substance: MAGNESIUM

REACTIONS (26)
  - Wrist fracture [Unknown]
  - Contusion [Not Recovered/Not Resolved]
  - Arthralgia [Not Recovered/Not Resolved]
  - Product dose omission issue [Unknown]
  - Platelet count decreased [Not Recovered/Not Resolved]
  - Cardiac disorder [Unknown]
  - Condition aggravated [Recovered/Resolved]
  - Chest pain [Recovered/Resolved]
  - Hypoaesthesia [Not Recovered/Not Resolved]
  - Thrombocytopenia [Unknown]
  - Cerebrovascular accident [Recovered/Resolved]
  - Transient ischaemic attack [Unknown]
  - Costochondritis [Recovered/Resolved]
  - Dyspnoea [Recovered/Resolved]
  - Paraesthesia [Not Recovered/Not Resolved]
  - Fall [Not Recovered/Not Resolved]
  - Vomiting [Not Recovered/Not Resolved]
  - Pulmonary arterial hypertension [Recovered/Resolved]
  - Vaginal haemorrhage [Recovered/Resolved]
  - Sinusitis [Unknown]
  - Sinus congestion [Unknown]
  - Joint injury [Unknown]
  - Malaise [Unknown]
  - Wrist surgery [Unknown]
  - White blood cell count decreased [Unknown]
  - Dizziness [Recovered/Resolved]

NARRATIVE: CASE EVENT DATE: 201611
